FAERS Safety Report 23636449 (Version 1)
Quarter: 2024Q1

REPORT INFORMATION
  Report Type: Spontaneous
  Country: US (occurrence: None)
  Receive Date: 20240314
  Receipt Date: 20240314
  Transmission Date: 20240409
  Serious: No
  Sender: FDA-Public Use
  Company Number: None

PATIENT
  Age: 19 Year
  Sex: Female
  Weight: 45 kg

DRUGS (8)
  1. TOBRAMYCIN [Suspect]
     Active Substance: TOBRAMYCIN
     Dosage: 300 MG TWICE A DAY RESPIRATORY I(INHALATON)
     Route: 055
     Dates: start: 20240116
  2. ALBUTEROL 2.5MG/3ML INH SOLN [Concomitant]
  3. BUDESONIDE 0.5MG/2ML INH SOLN [Concomitant]
  4. CALCIUM 600MG + D TABLETS [Concomitant]
  5. MULTIVITAMIN TABLETS [Concomitant]
  6. LANSOPRAZOLE 30MG CAPSULES [Concomitant]
  7. METHYLPHENIDATE [Concomitant]
     Active Substance: METHYLPHENIDATE
  8. VITAMIN D3 1000 UNIT TABLETS [Concomitant]

REACTIONS (2)
  - Sputum increased [None]
  - Mood swings [None]

NARRATIVE: CASE EVENT DATE: 20240117
